FAERS Safety Report 21817110 (Version 2)
Quarter: 2023Q1

REPORT INFORMATION
  Report Type: Spontaneous
  Country: CN (occurrence: CN)
  Receive Date: 20230104
  Receipt Date: 20230110
  Transmission Date: 20230417
  Serious: Yes (Disabling, Other)
  Sender: FDA-Public Use
  Company Number: CN-PFIZER INC-PV202300000031

PATIENT
  Age: 13 Year
  Sex: Male
  Weight: 74 kg

DRUGS (5)
  1. CYTARABINE [Suspect]
     Active Substance: CYTARABINE
     Indication: T-cell type acute leukaemia
     Dosage: 0.17 G, 1X/DAY
     Route: 041
     Dates: start: 20220915, end: 20220917
  2. CYCLOPHOSPHAMIDE [Suspect]
     Active Substance: CYCLOPHOSPHAMIDE
     Indication: T-cell type acute leukaemia
     Dosage: 0.6 G, 1X/DAY
     Route: 041
     Dates: start: 20220915, end: 20220916
  3. PEGASPARGASE [Suspect]
     Active Substance: PEGASPARGASE
     Indication: T-cell type acute leukaemia
     Dosage: 5 ML, 1X/DAY
     Route: 041
     Dates: start: 20220918, end: 20220918
  4. CHLORIDE SODIUM [Concomitant]
     Indication: Vehicle solution use
     Dosage: 100 ML, 1X/DAY
     Route: 041
     Dates: start: 20220915, end: 20220917
  5. CHLORIDE SODIUM [Concomitant]
     Dosage: 250 ML, 1X/DAY
     Route: 041
     Dates: start: 20220918, end: 20220918

REACTIONS (2)
  - Liver injury [Recovering/Resolving]
  - Myelosuppression [Recovering/Resolving]

NARRATIVE: CASE EVENT DATE: 20220928
